FAERS Safety Report 4598768-7 (Version None)
Quarter: 2005Q1

REPORT INFORMATION
  Report Type: 
  Country: None (occurrence: None)
  Receive Date: 20050301
  Receipt Date: 20050301
  Transmission Date: 20050727
  Serious: Yes (Hospitalization)
  Sender: FDA-Public Use
  Company Number: None

PATIENT
  Sex: Male

DRUGS (11)
  1. TERAZOSIN 2 MG [Suspect]
     Indication: BENIGN PROSTATIC HYPERPLASIA
     Dosage: 6 MG HS ORAL
     Route: 048
     Dates: start: 20040529, end: 20041129
  2. ALBUTEROL [Concomitant]
  3. AMOXICILLIN [Concomitant]
  4. STENOLOL [Concomitant]
  5. DONEPEZIL HCL [Concomitant]
  6. FLUOCINONIDE [Concomitant]
  7. HYDROCHLOROTHIAZIDE [Concomitant]
  8. HYDROCORTISONE [Concomitant]
  9. IBUPROFEN [Concomitant]
  10. NASALCROM [Concomitant]
  11. OMEPRAZOLE [Concomitant]

REACTIONS (1)
  - SYNCOPE [None]
